FAERS Safety Report 23827953 (Version 1)
Quarter: 2024Q2

REPORT INFORMATION
  Report Type: Spontaneous
  Country: CH (occurrence: CH)
  Receive Date: 20240507
  Receipt Date: 20240507
  Transmission Date: 20240716
  Serious: Yes (Hospitalization, Other)
  Sender: FDA-Public Use
  Company Number: CH-STRIDES ARCOLAB LIMITED-2024SP005248

PATIENT
  Age: 44 Year
  Sex: Male

DRUGS (11)
  1. ACYCLOVIR [Suspect]
     Active Substance: ACYCLOVIR
     Indication: Antiviral prophylaxis
     Dosage: 500 MILLIGRAM, BID
     Route: 048
  2. BENDAMUSTINE [Concomitant]
     Active Substance: BENDAMUSTINE
     Indication: Waldenstrom^s macroglobulinaemia
     Dosage: 200 MILLIGRAM/SQ. METER, SINGLE (ON DAYS -7 AND -6 AS A SINGLE 2 H INFUSION IN 500 ML SODIUM CHLORID
     Route: 065
  3. CYTARABINE [Concomitant]
     Active Substance: CYTARABINE
     Indication: Waldenstrom^s macroglobulinaemia
     Dosage: 200 MILLIGRAM/SQ. METER, EVERY 12 HRS  (ON DAYS -5 TO -2 EVERY 12H AS A 30MIN INFUSION IN 500ML SODI
     Route: 065
  4. ETOPOSIDE [Concomitant]
     Active Substance: ETOPOSIDE
     Indication: Waldenstrom^s macroglobulinaemia
     Dosage: 150 MILLIGRAM/SQ. METER, EVERY 12 HRS  (ON DAYS -5 TO -2 EVERY 12H AS A 30MIN INFUSION IN 500ML SODI
     Route: 065
  5. MELPHALAN [Concomitant]
     Active Substance: MELPHALAN
     Indication: Waldenstrom^s macroglobulinaemia
     Dosage: 140 MILLIGRAM/SQ. METER, SINGLE (ON DAY -1 AS A SINGLE ONE HOUR INFUSION IN 500ML SODIUM CHLORIDE)
     Route: 065
  6. FILGRASTIM [Concomitant]
     Active Substance: FILGRASTIM
     Indication: Infection prophylaxis
     Dosage: 5 MICROGRAM/KILOGRAM
     Route: 065
  7. FLUCONAZOLE [Concomitant]
     Active Substance: FLUCONAZOLE
     Indication: Antifungal prophylaxis
     Dosage: 400 MILLIGRAM, ONCE A WEEK
     Route: 048
  8. COTRIMOXAZOLE [Concomitant]
     Active Substance: SULFAMETHOXAZOLE\TRIMETHOPRIM
     Indication: Antifungal prophylaxis
     Dosage: UNK, TID (800/160MG THREE TIMES PER WEEK)
     Route: 048
  9. ALLOPURINOL [Concomitant]
     Active Substance: ALLOPURINOL
     Indication: Prophylaxis
     Dosage: 300 MILLIGRAM, QD (ON DAYS -7 TO -1)
     Route: 048
  10. SALINE [Concomitant]
     Active Substance: SODIUM CHLORIDE
     Indication: Vehicle solution use
     Dosage: 500 MILLILITER
     Route: 065
  11. Immunoglobulin [Concomitant]
     Indication: Immunodeficiency
     Dosage: UNK
     Route: 065

REACTIONS (1)
  - Drug ineffective [Unknown]
